FAERS Safety Report 8836173 (Version 2)
Quarter: 2012Q4

REPORT INFORMATION
  Report Type: 
  Country: US (occurrence: US)
  Receive Date: 20121011
  Receipt Date: 20121024
  Transmission Date: 20130627
  Serious: Yes (Other)
  Sender: FDA-Public Use
  Company Number: US-PFIZER INC-2012251962

PATIENT
  Age: 45 Year
  Sex: Female
  Weight: 65.8 kg

DRUGS (1)
  1. ZOLOFT [Suspect]
     Indication: DEPRESSION
     Dosage: 200 mg, daily
     Dates: end: 201209

REACTIONS (7)
  - Withdrawal syndrome [Unknown]
  - Mobility decreased [Unknown]
  - Muscle spasms [Unknown]
  - Apathy [Unknown]
  - Thinking abnormal [Unknown]
  - Crying [Unknown]
  - Family stress [Unknown]
